FAERS Safety Report 19977598 (Version 2)
Quarter: 2021Q4

REPORT INFORMATION
  Report Type: Spontaneous
  Country: FR (occurrence: FR)
  Receive Date: 20211020
  Receipt Date: 20211112
  Transmission Date: 20220303
  Serious: Yes (Hospitalization)
  Sender: FDA-Public Use
  Company Number: None

PATIENT
  Sex: Male
  Weight: .95 kg

DRUGS (1)
  1. ACETAMINOPHEN [Suspect]
     Active Substance: ACETAMINOPHEN
     Indication: Ductus arteriosus premature closure
     Dosage: 60 MILLIGRAM/KILOGRAM, Q6H
     Route: 048
     Dates: start: 20210619, end: 20210622

REACTIONS (5)
  - Metabolic acidosis [Recovered/Resolved]
  - Hyperammonaemia [Recovered/Resolved]
  - Analgesic drug level increased [Recovered/Resolved]
  - Product prescribing error [Recovered/Resolved]
  - Overdose [Recovered/Resolved]

NARRATIVE: CASE EVENT DATE: 20210619
